FAERS Safety Report 5941120-X (Version None)
Quarter: 2008Q4

REPORT INFORMATION
  Report Type: 
  Country: None (occurrence: None)
  Receive Date: 20081104
  Receipt Date: 20081027
  Transmission Date: 20090506
  Serious: Yes (Other)
  Sender: FDA-Public Use
  Company Number: FR-PFIZER INC-2008090818

PATIENT
  Sex: Female

DRUGS (6)
  1. DOSTINEX [Suspect]
  2. NEXIUM [Concomitant]
  3. DOMPERIDONE [Concomitant]
  4. ACETAMINOPHEN [Concomitant]
  5. THIOVALONE [Concomitant]
  6. RHINOFLUIMUCIL [Concomitant]

REACTIONS (1)
  - LIPASE INCREASED [None]
